FAERS Safety Report 25908290 (Version 2)
Quarter: 2025Q4

REPORT INFORMATION
  Report Type: Spontaneous
  Country: JP (occurrence: JP)
  Receive Date: 20251010
  Receipt Date: 20251113
  Transmission Date: 20260117
  Serious: Yes (Other)
  Sender: UCB
  Company Number: JP-UCBJ-CD202513454UCBPHAPROD

PATIENT

DRUGS (3)
  1. VIMPAT [Suspect]
     Active Substance: LACOSAMIDE
     Indication: Partial seizures
     Dosage: UNK
  2. VIMPAT [Suspect]
     Active Substance: LACOSAMIDE
     Indication: Lennox-Gastaut syndrome
  3. VIMPAT [Suspect]
     Active Substance: LACOSAMIDE
     Indication: Off label use

REACTIONS (10)
  - Epilepsy [Unknown]
  - Arrhythmia [Unknown]
  - Hallucination [Unknown]
  - Syncope [Unknown]
  - Dizziness [Unknown]
  - Somnolence [Unknown]
  - Irritability [Unknown]
  - Paranoia [Unknown]
  - Therapeutic response decreased [Unknown]
  - Off label use [Unknown]
